FAERS Safety Report 8529773-3 (Version None)
Quarter: 2012Q3

REPORT INFORMATION
  Report Type: 
  Country: None (occurrence: None)
  Receive Date: 20120723
  Receipt Date: 20120702
  Transmission Date: 20120928
  Serious: No
  Sender: FDA-Public Use
  Company Number: US-009507513-2012SP026622

PATIENT

DRUGS (5)
  1. CLARITIN [Concomitant]
  2. XOPENEX [Concomitant]
  3. ASMANEX TWISTHALER [Suspect]
     Indication: ASTHMA
     Dosage: 1 DF, QD
  4. NASACORT [Concomitant]
  5. PROVENTIL [Concomitant]

REACTIONS (1)
  - NERVOUSNESS [None]
